FAERS Safety Report 7474980-4 (Version None)
Quarter: 2011Q2

REPORT INFORMATION
  Report Type: 
  Country: None (occurrence: None)
  Receive Date: 20110505
  Receipt Date: 20110426
  Transmission Date: 20111010
  Serious: Yes (Other)
  Sender: FDA-Public Use
  Company Number: 2011MA004757

PATIENT
  Age: 54 Year
  Sex: Female

DRUGS (6)
  1. ZOPICLONE [Concomitant]
  2. CALCICHEW [Concomitant]
  3. SERTRALINE HYDROCHLORIDE [Concomitant]
  4. MIRTAZAPINE [Suspect]
     Indication: DEPRESSION
     Dosage: 45 MG;PO
     Route: 048
     Dates: start: 20110127
  5. TRAMADOL HYDROCHLORIDE [Suspect]
     Indication: BACK PAIN
     Dosage: 50 MG;PO
     Route: 048
     Dates: start: 20070101, end: 20110228
  6. TROSPIUM CHLORIDE [Concomitant]

REACTIONS (1)
  - HEPATIC ENZYME ABNORMAL [None]
